FAERS Safety Report 6255098-5 (Version None)
Quarter: 2009Q3

REPORT INFORMATION
  Report Type: 
  Country: None (occurrence: None)
  Receive Date: 20090702
  Receipt Date: 20090624
  Transmission Date: 20100115
  Serious: Yes (Other)
  Sender: FDA-Public Use
  Company Number: CZ-PFIZER INC-2009230486

PATIENT
  Age: 20 Year

DRUGS (5)
  1. GABAPENTIN [Suspect]
     Indication: NEURALGIA
     Dosage: FREQUENCY: DAILY;
  2. PREGABALIN [Suspect]
  3. CLONAZEPAM [Suspect]
  4. TRAMADOL HYDROCHLORIDE [Suspect]
     Dosage: AS MUCH AS 1,000 MG/DAY
  5. AMITRIPTYLINE [Suspect]

REACTIONS (2)
  - DRUG DEPENDENCE [None]
  - DRUG INEFFECTIVE [None]
